FAERS Safety Report 9745473 (Version 1)
Quarter: 2013Q4

REPORT INFORMATION
  Report Type: Spontaneous
  Country: JP (occurrence: JP)
  Receive Date: 20131211
  Receipt Date: 20131211
  Transmission Date: 20140711
  Serious: Yes (Other)
  Sender: FDA-Public Use
  Company Number: JP-PFIZER INC-2013346461

PATIENT
  Age: 82 Year
  Sex: Male

DRUGS (1)
  1. AMPICILLIN SODIUM/SULBACTAM SODIUM [Suspect]
     Indication: PROPHYLAXIS
     Dosage: 4.5 G, 1X/DAY

REACTIONS (2)
  - Pseudomembranous colitis [Recovering/Resolving]
  - Megacolon [Recovering/Resolving]
